FAERS Safety Report 5755516-2 (Version None)
Quarter: 2008Q2

REPORT INFORMATION
  Report Type: 
  Country: None (occurrence: None)
  Receive Date: 20080602
  Receipt Date: 20080523
  Transmission Date: 20081010
  Serious: Yes (Other)
  Sender: FDA-Public Use
  Company Number: US-JNJFOC-20080505342

PATIENT
  Sex: Female

DRUGS (2)
  1. MS PEPCID AC EZ CHEWS COOL MINT [Suspect]
  2. MS PEPCID AC EZ CHEWS COOL MINT [Suspect]
     Indication: DRUG USE FOR UNKNOWN INDICATION

REACTIONS (3)
  - DRUG INEFFECTIVE [None]
  - THERAPEUTIC RESPONSE DELAYED [None]
  - TOOTH INJURY [None]
